FAERS Safety Report 19235691 (Version 2)
Quarter: 2021Q3

REPORT INFORMATION
  Report Type: Spontaneous
  Country: FR (occurrence: FR)
  Receive Date: 20210510
  Receipt Date: 20210812
  Transmission Date: 20211014
  Serious: Yes (Death, Life-Threatening, Hospitalization, Other)
  Sender: FDA-Public Use
  Company Number: FR-LUPIN PHARMACEUTICALS INC.-2021-06303

PATIENT
  Age: 37 Year
  Sex: Male

DRUGS (1)
  1. OXYCODONE [Suspect]
     Active Substance: OXYCODONE
     Indication: PAIN
     Dosage: UNK
     Route: 048

REACTIONS (18)
  - Metabolic acidosis [Recovered/Resolved]
  - Miosis [Recovered/Resolved]
  - Coma [Fatal]
  - Leukoencephalopathy [Fatal]
  - Hyperhidrosis [Recovered/Resolved]
  - Condition aggravated [Fatal]
  - Hepatic failure [Recovered/Resolved]
  - Hyperlactacidaemia [Recovered/Resolved]
  - Hypoxia [Recovered/Resolved]
  - Rhabdomyolysis [Recovered/Resolved]
  - Toxicity to various agents [Fatal]
  - Hyperthermia [Recovered/Resolved]
  - Acute kidney injury [Recovered/Resolved]
  - Seizure [Fatal]
  - Overdose [Fatal]
  - Disseminated intravascular coagulation [Recovered/Resolved]
  - Hyperkalaemia [Recovered/Resolved]
  - Bradypnoea [Recovered/Resolved]
